FAERS Safety Report 6873784-0 (Version None)
Quarter: 2010Q3

REPORT INFORMATION
  Report Type: 
  Country: None (occurrence: None)
  Receive Date: 20100723
  Receipt Date: 20090313
  Transmission Date: 20110219
  Serious: No
  Sender: FDA-Public Use
  Company Number: US-PFIZER INC-2009184070

PATIENT
  Sex: Female
  Weight: 49.895 kg

DRUGS (1)
  1. CHANTIX [Suspect]
     Indication: SMOKING CESSATION THERAPY
     Dosage: 0.5 MG, 1X/DAY
     Dates: start: 20090201, end: 20090201

REACTIONS (4)
  - ABNORMAL DREAMS [None]
  - INSOMNIA [None]
  - MALAISE [None]
  - NAUSEA [None]
